FAERS Safety Report 23654813 (Version 1)
Quarter: 2024Q1

REPORT INFORMATION
  Report Type: Report from Study
  Country: FR (occurrence: FR)
  Receive Date: 20240320
  Receipt Date: 20240320
  Transmission Date: 20240409
  Serious: Yes (Other)
  Sender: FDA-Public Use
  Company Number: FR-JNJFOC-20240346253

PATIENT
  Age: 27 Year
  Sex: Female

DRUGS (4)
  1. SPRAVATO [Suspect]
     Active Substance: ESKETAMINE
     Indication: Product used for unknown indication
     Dates: start: 20230426, end: 20230502
  2. SPRAVATO [Suspect]
     Active Substance: ESKETAMINE
     Dates: start: 20230502, end: 20230505
  3. SPRAVATO [Suspect]
     Active Substance: ESKETAMINE
     Dates: start: 20230505, end: 20230509
  4. SPRAVATO [Suspect]
     Active Substance: ESKETAMINE
     Dosage: ERRONEOUSLY REPORTED END DATE AS 03/AUG/2024
     Dates: start: 20230509

REACTIONS (1)
  - Suicidal ideation [Recovering/Resolving]

NARRATIVE: CASE EVENT DATE: 20230505
